FAERS Safety Report 7952449-8 (Version None)
Quarter: 2011Q4

REPORT INFORMATION
  Report Type: 
  Country: None (occurrence: None)
  Receive Date: 20111201
  Receipt Date: 20111126
  Transmission Date: 20120403
  Serious: Yes (Other)
  Sender: FDA-Public Use
  Company Number: DE-GLAXOSMITHKLINE-D0073623A

PATIENT

DRUGS (1)
  1. TROBALT [Suspect]
     Indication: EPILEPSY
     Route: 048

REACTIONS (1)
  - APRAXIA [None]
